FAERS Safety Report 11564027 (Version 1)
Quarter: 2015Q3

REPORT INFORMATION
  Report Type: Other
  Country: GB (occurrence: GB)
  Receive Date: 20150928
  Receipt Date: 20150928
  Transmission Date: 20151125
  Serious: Yes (Other)
  Sender: FDA-Public Use
  Company Number: GB-MYLANLABS-2015M1031666

PATIENT

DRUGS (5)
  1. MIRTAZAPINE. [Concomitant]
     Active Substance: MIRTAZAPINE
  2. PREGABALIN. [Concomitant]
     Active Substance: PREGABALIN
  3. MIRTAZAPINE. [Suspect]
     Active Substance: MIRTAZAPINE
     Indication: DEPRESSION
     Dosage: 1 DF, BID (ONE CAPSULE IN THE MORNING, ONE CAPSULE AT NIGHT.)
     Route: 048
     Dates: start: 20091223
  4. AMITRIPTYLINE [Concomitant]
     Active Substance: AMITRIPTYLINE
  5. ACETAMINOPHEN AND CODEINE [Concomitant]
     Active Substance: ACETAMINOPHEN\CODEINE PHOSPHATE

REACTIONS (2)
  - Nightmare [Not Recovered/Not Resolved]
  - Depression [Not Recovered/Not Resolved]

NARRATIVE: CASE EVENT DATE: 20121210
